FAERS Safety Report 13550229 (Version 1)
Quarter: 2017Q2

REPORT INFORMATION
  Report Type: Spontaneous
  Country: US (occurrence: US)
  Receive Date: 20170516
  Receipt Date: 20170516
  Transmission Date: 20170830
  Serious: No
  Sender: FDA-Public Use
  Company Number: US-TEVA-769584ACC

PATIENT
  Age: 39 Year
  Sex: Female
  Weight: 69.92 kg

DRUGS (2)
  1. PLAN B ONE-STEP [Suspect]
     Active Substance: LEVONORGESTREL
     Indication: POST COITAL CONTRACEPTION
     Dates: start: 20170506, end: 20170506
  2. IRON [Concomitant]
     Active Substance: IRON
     Indication: BLOOD IRON DECREASED

REACTIONS (1)
  - Dysmenorrhoea [Not Recovered/Not Resolved]

NARRATIVE: CASE EVENT DATE: 20170506
